FAERS Safety Report 12334641 (Version 2)
Quarter: 2016Q2

REPORT INFORMATION
  Report Type: Spontaneous
  Country: US (occurrence: US)
  Receive Date: 20160504
  Receipt Date: 20160531
  Transmission Date: 20160815
  Serious: No
  Sender: FDA-Public Use
  Company Number: US-ROXANE LABORATORIES, INC.-2016-RO-00877RO

PATIENT
  Sex: Male

DRUGS (1)
  1. PREDNISONE TABLETS USP, 5MG [Suspect]
     Active Substance: PREDNISONE
     Indication: PSORIASIS
     Route: 065

REACTIONS (5)
  - Nausea [Unknown]
  - Product quality issue [Unknown]
  - Headache [Unknown]
  - Drug ineffective [Unknown]
  - Weight increased [Unknown]
